FAERS Safety Report 5848509-8 (Version None)
Quarter: 2008Q3

REPORT INFORMATION
  Report Type: 
  Country: None (occurrence: None)
  Receive Date: 20080818
  Receipt Date: 20080417
  Transmission Date: 20090109
  Serious: No
  Sender: FDA-Public Use
  Company Number: US-BAYER-200820463NA

PATIENT

DRUGS (1)
  1. BETASERON [Suspect]
     Indication: UNEVALUABLE EVENT

REACTIONS (1)
  - ULCER [None]
